FAERS Safety Report 7240663-9 (Version None)
Quarter: 2011Q1

REPORT INFORMATION
  Report Type: 
  Country: None (occurrence: None)
  Receive Date: 20110124
  Receipt Date: 20091228
  Transmission Date: 20110831
  Serious: No
  Sender: FDA-Public Use
  Company Number: US-KINGPHARMUSA00001-K200901634

PATIENT
  Sex: Female
  Weight: 86.168 kg

DRUGS (3)
  1. EPIPEN [Suspect]
     Dosage: 0.3 MG, SINGLE
     Dates: start: 20091101, end: 20091101
  2. BENICAR HCT [Concomitant]
     Indication: HYPERTENSION
     Dosage: 25/12.5 MG, 1/2 TABLET QD
     Route: 048
  3. SYNTHROID [Concomitant]
     Indication: HYPERTHYROIDISM
     Dosage: 150 MCG, QD
     Route: 048

REACTIONS (6)
  - ACCIDENTAL EXPOSURE [None]
  - INJECTION SITE PAIN [None]
  - NAIL INJURY [None]
  - INJECTION SITE DISCOLOURATION [None]
  - SKELETAL INJURY [None]
  - NERVOUSNESS [None]
